FAERS Safety Report 9300418 (Version 2)
Quarter: 2013Q2

REPORT INFORMATION
  Report Type: Spontaneous
  Country: JP (occurrence: JP)
  Receive Date: 20130521
  Receipt Date: 20130617
  Transmission Date: 20140414
  Serious: Yes (Hospitalization, Other)
  Sender: FDA-Public Use
  Company Number: JP-PFIZER INC-2013153013

PATIENT
  Age: 70 Year
  Sex: Male

DRUGS (8)
  1. HALCION [Suspect]
     Indication: INSOMNIA
     Dosage: TWO 0.25 MG/DAY
     Route: 048
  2. MYSLEE [Suspect]
     Indication: INSOMNIA
     Dosage: 10 MG, 1X/DAY
     Route: 048
  3. MYSLEE [Suspect]
     Dosage: ABOUT 30 TABLETS, SINGLE
     Route: 048
  4. IRESSA [Concomitant]
     Indication: LUNG NEOPLASM MALIGNANT
     Dosage: 250 MG, 1X/DAY, AFTER BREAKFAST
     Route: 048
  5. CERCINE [Concomitant]
     Dosage: 5 MG, 2X/DAY, AFTER BERAKFAST AND SUPPER
     Route: 048
  6. REMERON [Concomitant]
     Dosage: 15 MG, 1X/DAY BEFORE BED TIME
     Route: 048
  7. DEPAS [Concomitant]
     Dosage: 0.5 MG, 3X/DAY, AFTER BREAKFAST, LUNCH, AND SUPPER
     Route: 048
  8. URSO [Concomitant]
     Dosage: 100 MG, 3X/DAY AFTER BREAKFAST, LUNCH AND SUPPER
     Route: 048

REACTIONS (6)
  - Coma [Recovered/Resolved]
  - Quadriplegia [Unknown]
  - Respiratory depression [Unknown]
  - Somnolence [Unknown]
  - Acidosis [Unknown]
  - Hypercapnia [Unknown]
